FAERS Safety Report 8615114 (Version 2)
Quarter: 2012Q4

REPORT INFORMATION
  Report Type: 
  Country: US (occurrence: US)
  Receive Date: 20120614
  Receipt Date: 20121026
  Transmission Date: 20130627
  Serious: No
  Sender: FDA-Public Use
  Company Number: US-PFIZER INC-2012143085

PATIENT
  Age: 53 Year
  Sex: Male
  Weight: 136 kg

DRUGS (5)
  1. CHANTIX [Suspect]
     Indication: SMOKING CESSATION THERAPY
     Dosage: 0.5 mg, 1x/day
     Route: 048
     Dates: start: 20120531, end: 201206
  2. CHANTIX [Suspect]
     Dosage: 1 mg, 2x/day
     Route: 048
     Dates: start: 201206, end: 20120712
  3. TERAZOSIN [Concomitant]
     Dosage: UNK
  4. OMEPRAZOLE [Concomitant]
     Dosage: UNK
  5. AMITRIPTYLINE [Concomitant]
     Dosage: UNK

REACTIONS (3)
  - Nausea [Recovered/Resolved]
  - Dizziness [Not Recovered/Not Resolved]
  - Abdominal discomfort [Recovered/Resolved]
